FAERS Safety Report 8142285 (Version 9)
Quarter: 2014Q1

REPORT INFORMATION
  Report Type: Spontaneous
  Country: US (occurrence: US)
  Receive Date: 20110919
  Receipt Date: 20140328
  Transmission Date: 20141002
  Serious: Yes (Death, Hospitalization)
  Sender: FDA-Public Use
  Company Number: US-JNJFOC-20110904841

PATIENT
  Age: 54 Year
  Sex: Female
  Weight: 111 kg

DRUGS (18)
  1. TYLENOL [Suspect]
     Route: 048
  2. TYLENOL [Suspect]
     Indication: HEADACHE
     Route: 048
     Dates: start: 20090914, end: 20090914
  3. TRAZODONE [Concomitant]
     Indication: ANXIETY
     Route: 048
  4. MIRAPEX [Concomitant]
     Indication: RESTLESS LEGS SYNDROME
     Route: 048
  5. CLARITIN-D [Concomitant]
     Indication: SEASONAL ALLERGY
     Route: 065
  6. CLARITIN-D [Concomitant]
     Indication: EAR INFECTION
     Route: 065
  7. NICOTINE PATCH [Concomitant]
     Indication: PRODUCT USED FOR UNKNOWN INDICATION
     Route: 065
  8. POTASSIUM CHLORIDE [Concomitant]
     Indication: PRODUCT USED FOR UNKNOWN INDICATION
     Route: 048
  9. BACTRIM [Concomitant]
     Indication: PRODUCT USED FOR UNKNOWN INDICATION
     Route: 048
  10. MIRAPEX [Concomitant]
     Indication: PRODUCT USED FOR UNKNOWN INDICATION
     Route: 048
  11. TRAZODONE [Concomitant]
     Indication: PRODUCT USED FOR UNKNOWN INDICATION
     Route: 048
  12. SENOKOT-S [Concomitant]
     Indication: PRODUCT USED FOR UNKNOWN INDICATION
     Route: 048
  13. DULCOLAX [Concomitant]
     Indication: CONSTIPATION
     Route: 065
  14. ZOFRAN [Concomitant]
     Indication: PRODUCT USED FOR UNKNOWN INDICATION
     Route: 042
  15. NORMAL SALINE POTASSIUM [Concomitant]
     Indication: PRODUCT USED FOR UNKNOWN INDICATION
     Route: 065
  16. PHENERGAN [Concomitant]
     Indication: PRODUCT USED FOR UNKNOWN INDICATION
     Route: 030
  17. PHENERGAN [Concomitant]
     Indication: PRODUCT USED FOR UNKNOWN INDICATION
     Route: 030
  18. MORPHINE [Concomitant]
     Indication: PAIN
     Route: 065
     Dates: start: 20090913

REACTIONS (5)
  - Toxicity to various agents [Fatal]
  - Renal failure acute [Fatal]
  - Overdose [Fatal]
  - Hepatitis acute [Fatal]
  - Hepatic failure [Fatal]
